FAERS Safety Report 12873097 (Version 2)
Quarter: 2016Q4

REPORT INFORMATION
  Report Type: Spontaneous
  Country: US (occurrence: US)
  Receive Date: 20161021
  Receipt Date: 20161205
  Transmission Date: 20170207
  Serious: No
  Sender: FDA-Public Use
  Company Number: US-GLENMARK PHARMACEUTICALS INC, USA.-2016GMK024441

PATIENT

DRUGS (1)
  1. DROSPIRENONE/ETHINYLESTRADIOL TABLETS 3 MG/0.03 MG [Suspect]
     Active Substance: DROSPIRENONE\ETHINYL ESTRADIOL
     Indication: CONTRACEPTION
     Dosage: UNK
     Route: 065

REACTIONS (4)
  - Product substitution issue [Unknown]
  - Product packaging issue [Unknown]
  - Product formulation issue [Unknown]
  - Acne [Unknown]
